FAERS Safety Report 8935408 (Version 1)
Quarter: 2012Q4

REPORT INFORMATION
  Report Type: Spontaneous
  Country: US (occurrence: None)
  Receive Date: 20121128
  Receipt Date: 20121128
  Transmission Date: 20130627
  Serious: Yes (Life-Threatening, Hospitalization, Other)
  Sender: FDA-Public Use
  Company Number: None

PATIENT
  Age: 76 Year
  Sex: Female
  Weight: 56.7 kg

DRUGS (3)
  1. DEXAMETHASONE SODIUM PHOSPHATE [Suspect]
     Indication: OSTEOARTHRITIS KNEE
     Dosage: 1 time injection - rt. knee
     Dates: start: 20120831
  2. SYNTHROID [Concomitant]
  3. VIVELLE DOT [Concomitant]

REACTIONS (9)
  - Tremor [None]
  - Headache [None]
  - Flushing [None]
  - Anxiety [None]
  - Insomnia [None]
  - Dyspnoea [None]
  - Blood pressure increased [None]
  - Blood pressure decreased [None]
  - No therapeutic response [None]
